FAERS Safety Report 4519599-X (Version None)
Quarter: 2004Q4

REPORT INFORMATION
  Report Type: 
  Country: None (occurrence: None)
  Receive Date: 20041203
  Receipt Date: 20040916
  Transmission Date: 20050328
  Serious: Yes (Hospitalization)
  Sender: FDA-Public Use
  Company Number: M2004-1804

PATIENT
  Age: 72 Year
  Sex: Female

DRUGS (2)
  1. FLUVOXAMINE [Suspect]
     Dosage: 100 MG DAILY
     Dates: start: 19971101
  2. INDAPAMIDE [Concomitant]

REACTIONS (4)
  - BLOOD POTASSIUM DECREASED [None]
  - DISORIENTATION [None]
  - INAPPROPRIATE ANTIDIURETIC HORMONE SECRETION [None]
  - POLYURIA [None]
